FAERS Safety Report 5830240-6 (Version None)
Quarter: 2008Q3

REPORT INFORMATION
  Report Type: 
  Country: None (occurrence: None)
  Receive Date: 20080801
  Receipt Date: 20080722
  Transmission Date: 20090109
  Serious: Yes (Hospitalization, Disabling)
  Sender: FDA-Public Use
  Company Number: B0530214A

PATIENT
  Age: 19 Year
  Sex: Female
  Weight: 47 kg

DRUGS (7)
  1. MELPHALAN [Suspect]
     Indication: BONE MARROW CONDITIONING REGIMEN
     Dosage: 200MG PER DAY
     Route: 042
     Dates: start: 20061212
  2. BUSULFAN [Suspect]
     Indication: DRUG USE FOR UNKNOWN INDICATION
     Dosage: 368MG PER DAY
     Route: 065
     Dates: start: 20061208, end: 20061212
  3. KEPIVANCE [Suspect]
     Indication: MUCOSAL INFLAMMATION
     Dosage: 3MG PER DAY
     Route: 042
     Dates: start: 20061204
  4. NOMEGESTROL ACETATE [Concomitant]
     Dosage: 1UNIT PER DAY
     Route: 048
  5. OGAST [Concomitant]
     Dosage: 1UNIT PER DAY
  6. BROMAZEPAM [Concomitant]
     Dosage: 1UNIT PER DAY
  7. ZOLPIDEM [Concomitant]
     Dosage: 1UNIT PER DAY

REACTIONS (17)
  - ANAEMIA [None]
  - ANOREXIA [None]
  - DIARRHOEA [None]
  - DYSPHAGIA [None]
  - GAIT DISTURBANCE [None]
  - GAMMA-GLUTAMYLTRANSFERASE INCREASED [None]
  - GENERAL PHYSICAL HEALTH DETERIORATION [None]
  - HYPOKALAEMIA [None]
  - LEUKOPENIA [None]
  - MALNUTRITION [None]
  - NEUTROPENIA [None]
  - OESOPHAGITIS [None]
  - SALIVARY HYPERSECRETION [None]
  - SKIN EXFOLIATION [None]
  - SKIN HYPERPIGMENTATION [None]
  - THROMBOCYTOPENIA [None]
  - VOMITING [None]
